FAERS Safety Report 11134511 (Version 5)
Quarter: 2015Q3

REPORT INFORMATION
  Report Type: Spontaneous
  Country: PL (occurrence: PL)
  Receive Date: 20150525
  Receipt Date: 20150805
  Transmission Date: 20151125
  Serious: Yes (Hospitalization, Other)
  Sender: FDA-Public Use
  Company Number: PL-ROCHE-1582330

PATIENT
  Age: 30 Year
  Sex: Male
  Weight: 67 kg

DRUGS (10)
  1. ARANESP [Suspect]
     Active Substance: DARBEPOETIN ALFA
     Indication: ANAEMIA
     Route: 042
     Dates: start: 20120401
  2. ALFADIOL [Concomitant]
     Active Substance: ALFACALCIDOL
     Indication: HYPERPARATHYROIDISM SECONDARY
     Route: 048
     Dates: start: 201102
  3. MIMPARA [Concomitant]
     Active Substance: CINACALCET HYDROCHLORIDE
     Indication: HYPERPARATHYROIDISM SECONDARY
     Route: 048
     Dates: start: 20140123
  4. DOXANORM [Concomitant]
     Indication: HYPERTENSION
     Route: 065
     Dates: start: 2011
  5. CALCIUM CARBONICUM [Concomitant]
     Indication: HYPOCALCAEMIA
     Dosage: 4 X 1G
     Route: 065
     Dates: start: 2005
  6. MIRCERA [Suspect]
     Active Substance: METHOXY POLYETHYLENE GLYCOL-EPOETIN BETA
     Route: 042
     Dates: start: 20150616
  7. IPOREL [Concomitant]
     Active Substance: CLONIDINE
     Indication: HYPERTENSION
     Route: 048
     Dates: start: 2005
  8. BISOCARD [Concomitant]
     Active Substance: BISOPROLOL
     Indication: HYPERTENSION
     Route: 048
     Dates: start: 2005
  9. NORVASC [Concomitant]
     Active Substance: AMLODIPINE BESYLATE
     Indication: HYPERTENSION
     Route: 048
     Dates: start: 2011
  10. MIRCERA [Suspect]
     Active Substance: METHOXY POLYETHYLENE GLYCOL-EPOETIN BETA
     Indication: ANAEMIA
     Dosage: DOSE UP TO 250MG
     Route: 042
     Dates: start: 20110301, end: 20110301

REACTIONS (5)
  - Haemoglobin decreased [Unknown]
  - Transfusion reaction [Unknown]
  - Haemolysis [Unknown]
  - Drug ineffective [Unknown]
  - Aplasia pure red cell [Not Recovered/Not Resolved]

NARRATIVE: CASE EVENT DATE: 20141223
